FAERS Safety Report 7556524-1 (Version None)
Quarter: 2011Q2

REPORT INFORMATION
  Report Type: 
  Country: None (occurrence: None)
  Receive Date: 20110614
  Receipt Date: 20110614
  Transmission Date: 20111010
  Serious: Yes (Other)
  Sender: FDA-Public Use
  Company Number: None

PATIENT
  Sex: Female
  Weight: 102.0593 kg

DRUGS (2)
  1. CEPHALEXIN [Suspect]
     Indication: ACUTE SINUSITIS
     Dosage: 500MG BID PO
     Route: 048
  2. CEPHALEXIN [Suspect]
     Indication: BRONCHITIS
     Dosage: 500MG BID PO
     Route: 048

REACTIONS (3)
  - NAUSEA [None]
  - PRODUCT QUALITY ISSUE [None]
  - MALAISE [None]
